FAERS Safety Report 6130330-7 (Version None)
Quarter: 2009Q1

REPORT INFORMATION
  Report Type: 
  Country: None (occurrence: None)
  Receive Date: 20090324
  Receipt Date: 20090313
  Transmission Date: 20090719
  Serious: No
  Sender: FDA-Public Use
  Company Number: US-B.I. PHARMACEUTICALS,INC./RIDGEFIELD-2009-BP-03393BP

PATIENT
  Sex: Female

DRUGS (3)
  1. SPIRIVA [Suspect]
     Indication: CHRONIC OBSTRUCTIVE PULMONARY DISEASE
     Dates: start: 20071101
  2. ADVAIR HFA [Concomitant]
     Indication: DYSPNOEA
  3. ALBUTEROL SULFATE [Concomitant]
     Indication: DYSPNOEA

REACTIONS (2)
  - ARTHROPATHY [None]
  - MUSCLE INJURY [None]
